FAERS Safety Report 16404075 (Version 1)
Quarter: 2019Q2

REPORT INFORMATION
  Report Type: Spontaneous
  Country: GB (occurrence: GB)
  Receive Date: 20190607
  Receipt Date: 20190607
  Transmission Date: 20190711
  Serious: Yes (Other)
  Sender: FDA-Public Use
  Company Number: GB-TEVA-2019-GB-1061083

PATIENT
  Age: 48 Year
  Sex: Male

DRUGS (3)
  1. ACTAVIS ESOMEPRAZOLE [Suspect]
     Active Substance: ESOMEPRAZOLE
     Indication: OESOPHAGITIS
     Dosage: 20 MG- 40 MG, FREQUENCY UNKNOWN, STARTED TREATMENT AROUND 10-15 YEARS AGO
     Route: 048
  2. RANITIDINE. [Concomitant]
     Active Substance: RANITIDINE
     Route: 065
  3. B12 INJECTIONS [Concomitant]
     Dosage: EVERY 3 MONTHS
     Route: 065

REACTIONS (3)
  - Cerebral atrophy [Not Recovered/Not Resolved]
  - Gastric polyps [Not Recovered/Not Resolved]
  - White matter lesion [Not Recovered/Not Resolved]
